FAERS Safety Report 6538063-X (Version None)
Quarter: 2010Q1

REPORT INFORMATION
  Report Type: 
  Country: None (occurrence: None)
  Receive Date: 20100112
  Receipt Date: 20100112
  Transmission Date: 20100710
  Serious: Yes (Other)
  Sender: FDA-Public Use
  Company Number: None

PATIENT
  Sex: Female
  Weight: 74.8435 kg

DRUGS (6)
  1. POLYMYXIN B SULFATES AND TRIMETHOPRIM SULFATE [Suspect]
     Indication: CONJUNCTIVITIS
     Dosage: 3 DROPS 4 TIMES/DAY FOR 10 TOP
     Route: 061
     Dates: start: 20100107, end: 20100108
  2. LEVOXYL [Concomitant]
  3. ALENDRONATE SODIUM [Concomitant]
  4. LISINOPRIL [Concomitant]
  5. MELOXICAM [Concomitant]
  6. NIACIN [Concomitant]

REACTIONS (3)
  - ERYTHEMA [None]
  - EYE PAIN [None]
  - SWELLING FACE [None]
